FAERS Safety Report 15586918 (Version 1)
Quarter: 2018Q4

REPORT INFORMATION
  Report Type: Spontaneous
  Country: US (occurrence: US)
  Receive Date: 20181102
  Receipt Date: 20181102
  Transmission Date: 20190205
  Serious: Yes (Death, Life-Threatening, Hospitalization)
  Sender: FDA-Public Use
  Company Number: None

PATIENT
  Age: 75 Year
  Sex: Female
  Weight: 63 kg

DRUGS (13)
  1. VALSARTAN. [Suspect]
     Active Substance: VALSARTAN
     Dates: end: 20180801
  2. ATOVAQUONE. [Concomitant]
     Active Substance: ATOVAQUONE
  3. OMEPRAZOLE. [Concomitant]
     Active Substance: OMEPRAZOLE
  4. PROAIR HFA [Concomitant]
     Active Substance: ALBUTEROL SULFATE
  5. CALCIUM [Concomitant]
     Active Substance: CALCIUM
  6. SYMBICORT [Concomitant]
     Active Substance: BUDESONIDE\FORMOTEROL FUMARATE DIHYDRATE
  7. ATORVASTATIN [Concomitant]
     Active Substance: ATORVASTATIN
  8. VITAMINS [Concomitant]
     Active Substance: VITAMINS
  9. ASA [Concomitant]
     Active Substance: ASPIRIN
  10. PREDNISONE. [Concomitant]
     Active Substance: PREDNISONE
  11. LOSARTAN. [Suspect]
     Active Substance: LOSARTAN
     Dates: start: 20180801, end: 20180805
  12. DIOVAN [Concomitant]
     Active Substance: VALSARTAN
  13. CENTRUM [Concomitant]
     Active Substance: VITAMINS

REACTIONS (19)
  - Drug-induced liver injury [None]
  - Herpes simplex viraemia [None]
  - Malaise [None]
  - Rash generalised [None]
  - Hypersensitivity [None]
  - Toxicity to various agents [None]
  - Bone marrow toxicity [None]
  - Autoimmune disorder [None]
  - Transaminases increased [None]
  - Recalled product [None]
  - Hyperbilirubinaemia [None]
  - Neutropenia [None]
  - Agranulocytosis [None]
  - Alveolitis allergic [None]
  - Neoplasm [None]
  - Haemophagocytic lymphohistiocytosis [None]
  - Hypotension [None]
  - Infection [None]
  - Myeloid maturation arrest [None]

NARRATIVE: CASE EVENT DATE: 20180812
